FAERS Safety Report 9126057 (Version 5)
Quarter: 2014Q4

REPORT INFORMATION
  Report Type: Spontaneous
  Country: US (occurrence: US)
  Receive Date: 20130117
  Receipt Date: 20141110
  Transmission Date: 20150529
  Serious: Yes (Hospitalization, Other)
  Sender: FDA-Public Use
  Company Number: US-009507513-1301USA006581

PATIENT
  Sex: Female
  Weight: 40.82 kg

DRUGS (2)
  1. BONIVA [Suspect]
     Active Substance: IBANDRONATE SODIUM
     Indication: OSTEOPENIA
     Dosage: 150 MG, UNK
     Route: 048
     Dates: start: 200510, end: 201101
  2. FOSAMAX [Suspect]
     Active Substance: ALENDRONATE SODIUM
     Indication: OSTEOPENIA
     Dosage: 70 MG, UNK
     Route: 048
     Dates: start: 2000, end: 200510

REACTIONS (28)
  - Femur fracture [Unknown]
  - Polypectomy [Unknown]
  - Myomectomy [Unknown]
  - Anaemia postoperative [Unknown]
  - Post procedural haematoma [Unknown]
  - Oropharyngeal pain [Unknown]
  - Peripheral swelling [Unknown]
  - Hypertension [Unknown]
  - Dehydration [Unknown]
  - Arthritis [Unknown]
  - Musculoskeletal stiffness [Unknown]
  - Post procedural constipation [Unknown]
  - Open reduction of fracture [Unknown]
  - Low turnover osteopathy [Unknown]
  - Adverse event [Unknown]
  - Ecchymosis [Unknown]
  - Anaemia [Unknown]
  - Rash [Unknown]
  - Gout [Unknown]
  - Biopsy [Unknown]
  - Femur fracture [Unknown]
  - Incision site rash [Unknown]
  - Arthralgia [Unknown]
  - Gastritis [Unknown]
  - Oesophagitis [Unknown]
  - Nasopharyngitis [Unknown]
  - Gastric polyps [Unknown]
  - Epistaxis [Unknown]

NARRATIVE: CASE EVENT DATE: 20020517
